FAERS Safety Report 8457317-3 (Version None)
Quarter: 2012Q2

REPORT INFORMATION
  Report Type: 
  Country: None (occurrence: None)
  Receive Date: 20120621
  Receipt Date: 20120615
  Transmission Date: 20120825
  Serious: Yes (Hospitalization)
  Sender: FDA-Public Use
  Company Number: CO-PFIZER INC-2012118173

PATIENT
  Age: 4 Year
  Sex: Female

DRUGS (3)
  1. GENOTROPIN [Suspect]
     Indication: GROWTH HORMONE DEFICIENCY
     Dosage: UNK
     Dates: start: 20061201
  2. FLUDROCORTISONE [Concomitant]
     Indication: ADRENAL INSUFFICIENCY
     Dosage: 0.1 MG, EVERY 12 HOURS
     Route: 048
     Dates: start: 20060301
  3. PREDNISOLONE [Concomitant]
     Dosage: 10 MG, EVERY 12 HOURS
     Route: 048
     Dates: start: 20050401

REACTIONS (3)
  - ABDOMINAL PAIN [None]
  - VOMITING [None]
  - PYREXIA [None]
